FAERS Safety Report 9308190 (Version 1)
Quarter: 2013Q2

REPORT INFORMATION
  Report Type: Spontaneous
  Country: US (occurrence: US)
  Receive Date: 20130524
  Receipt Date: 20130524
  Transmission Date: 20140414
  Serious: No
  Sender: FDA-Public Use
  Company Number: US-009507513-1305USA014276

PATIENT
  Sex: Female

DRUGS (1)
  1. DR. SCHOLL?S ODOR-X FOOT POWDER [Suspect]
     Indication: HYPERHIDROSIS
     Dosage: UNK, UNKNOWN
     Route: 061

REACTIONS (2)
  - Skin odour abnormal [Unknown]
  - Condition aggravated [Unknown]
